FAERS Safety Report 9768474 (Version 1)
Quarter: 2013Q4

REPORT INFORMATION
  Report Type: Spontaneous
  Country: FR (occurrence: FR)
  Receive Date: 20131217
  Receipt Date: 20131217
  Transmission Date: 20140711
  Serious: Yes (Congenital Anomaly)
  Sender: FDA-Public Use
  Company Number: CHNY2013FR002827

PATIENT
  Sex: 0

DRUGS (1)
  1. VOLTAREN ACTIGO [Suspect]
     Route: 064

REACTIONS (2)
  - Renal disorder [Unknown]
  - Foetal exposure during pregnancy [Unknown]
